FAERS Safety Report 22095536 (Version 3)
Quarter: 2023Q1

REPORT INFORMATION
  Report Type: Spontaneous
  Country: US (occurrence: US)
  Receive Date: 20230314
  Receipt Date: 20230330
  Transmission Date: 20230417
  Serious: No
  Sender: FDA-Public Use
  Company Number: US-PFIZER INC-2019491347

PATIENT
  Age: 69 Year
  Sex: Female
  Weight: 54.43 kg

DRUGS (2)
  1. PREMARIN [Suspect]
     Active Substance: ESTROGENS, CONJUGATED
     Indication: Atrophic vulvovaginitis
     Dosage: 0.5 MG, 2X/WEEK (BEDTIME TWICE WEEKLY)
     Route: 067
  2. PREMARIN [Suspect]
     Active Substance: ESTROGENS, CONJUGATED
     Indication: Vulvovaginal dryness
     Dosage: UNK (SHE USES THE CREAM A COUPLE TIMES A WEEK.)

REACTIONS (6)
  - Body height decreased [Unknown]
  - Back disorder [Unknown]
  - Bone disorder [Unknown]
  - Drug effect less than expected [Unknown]
  - Expired product administered [Unknown]
  - Therapy interrupted [Unknown]
